FAERS Safety Report 10741077 (Version 2)
Quarter: 2015Q1

REPORT INFORMATION
  Report Type: Spontaneous
  Country: US (occurrence: US)
  Receive Date: 20150127
  Receipt Date: 20150302
  Transmission Date: 20150721
  Serious: Yes (Hospitalization, Disabling, Other)
  Sender: FDA-Public Use
  Company Number: US-009507513-1107USA00013

PATIENT
  Sex: Female

DRUGS (6)
  1. PRAVACHOL [Concomitant]
     Active Substance: PRAVASTATIN SODIUM
     Indication: BLOOD CHOLESTEROL INCREASED
     Dosage: UNK
     Dates: start: 1987
  2. PREDNISONE. [Concomitant]
     Active Substance: PREDNISONE
     Indication: HYPOPITUITARISM
     Dosage: 1 MG, BID
     Dates: start: 1986
  3. LIPITOR [Concomitant]
     Active Substance: ATORVASTATIN CALCIUM
     Indication: BLOOD CHOLESTEROL INCREASED
     Dosage: UNK
     Dates: start: 1987
  4. VITAMIN D [Concomitant]
     Active Substance: CHOLECALCIFEROL
     Dosage: 600 MG, UNK
     Dates: start: 1987
  5. FOSAMAX [Suspect]
     Active Substance: ALENDRONATE SODIUM
     Dosage: 10 MG, UNK
     Route: 048
     Dates: start: 1997, end: 2005
  6. CALCIUM (UNSPECIFIED) [Concomitant]
     Active Substance: CALCIUM
     Dosage: 1000 MG, UNK
     Dates: start: 1987

REACTIONS (27)
  - Adverse event [Unknown]
  - Confusional state [Unknown]
  - Carotid bruit [Unknown]
  - Muscle spasms [Recovering/Resolving]
  - Open reduction of fracture [Unknown]
  - Bundle branch block right [Unknown]
  - Arthralgia [Unknown]
  - Sleep disorder [Unknown]
  - Low turnover osteopathy [Not Recovered/Not Resolved]
  - Osteopenia [Unknown]
  - Anaemia postoperative [Unknown]
  - Blood creatinine increased [Recovered/Resolved]
  - Sinus tachycardia [Unknown]
  - Osteoporosis [Unknown]
  - Hyperlipidaemia [Unknown]
  - Femur fracture [Recovering/Resolving]
  - Fall [Unknown]
  - Osteoporosis [Not Recovered/Not Resolved]
  - Diabetes insipidus [Unknown]
  - Breast cancer [Unknown]
  - Femur fracture [Not Recovered/Not Resolved]
  - Cataract [Unknown]
  - Lung disorder [Not Recovered/Not Resolved]
  - Intramedullary rod insertion [Unknown]
  - Hypertension [Unknown]
  - Breast lump removal [Unknown]
  - Osteoarthritis [Unknown]

NARRATIVE: CASE EVENT DATE: 2001
